FAERS Safety Report 14940847 (Version 2)
Quarter: 2018Q2

REPORT INFORMATION
  Report Type: Spontaneous
  Country: BE (occurrence: BE)
  Receive Date: 20180525
  Receipt Date: 20180531
  Transmission Date: 20180711
  Serious: Yes (Life-Threatening, Hospitalization)
  Sender: FDA-Public Use
  Company Number: BE-ELI_LILLY_AND_COMPANY-BE201805007004

PATIENT
  Age: 59 Year
  Sex: Male
  Weight: 72 kg

DRUGS (2)
  1. ABILIFY [Concomitant]
     Active Substance: ARIPIPRAZOLE
     Indication: PRODUCT USED FOR UNKNOWN INDICATION
     Dosage: 10 MG, UNKNOWN
     Route: 065
  2. ZYPADHERA [Suspect]
     Active Substance: OLANZAPINE PAMOATE
     Indication: SCHIZOPHRENIA
     Dosage: 300 MG, 2/M
     Route: 030
     Dates: start: 20161128, end: 20180524

REACTIONS (16)
  - Tachycardia [Recovered/Resolved]
  - Hallucination [Recovered/Resolved]
  - Extrapyramidal disorder [Recovered/Resolved]
  - Overdose [Recovered/Resolved]
  - Delirium [Recovered/Resolved]
  - Muscle rigidity [Recovered/Resolved]
  - Speech disorder [Recovered/Resolved]
  - Confusional state [Recovered/Resolved]
  - Hyperthermia [Recovered/Resolved]
  - Agitation [Recovered/Resolved]
  - Disorientation [Recovered/Resolved]
  - Sedation [Recovered/Resolved]
  - Asthenia [Recovered/Resolved]
  - Post-injection delirium sedation syndrome [Recovered/Resolved]
  - Neuroleptic malignant syndrome [Recovered/Resolved]
  - Hypertension [Recovered/Resolved]

NARRATIVE: CASE EVENT DATE: 20180515
